FAERS Safety Report 9571204 (Version 2)
Quarter: 2013Q4

REPORT INFORMATION
  Report Type: Spontaneous
  Country: CH (occurrence: CH)
  Receive Date: 20131001
  Receipt Date: 20131008
  Transmission Date: 20140711
  Serious: Yes (Other)
  Sender: FDA-Public Use
  Company Number: CH-ROCHE-1282334

PATIENT
  Sex: Female

DRUGS (5)
  1. MABTHERA [Suspect]
     Indication: B-CELL LYMPHOMA
     Route: 065
  2. CYCLOPHOSPHAMIDE [Concomitant]
  3. DOXORUBICIN [Concomitant]
  4. ONCOVIN [Concomitant]
  5. PREDNISONE [Concomitant]

REACTIONS (2)
  - Visual acuity reduced [Unknown]
  - Neoplasm progression [Unknown]
